FAERS Safety Report 19475329 (Version 2)
Quarter: 2021Q4

REPORT INFORMATION
  Report Type: Report from Study
  Country: NL (occurrence: NL)
  Receive Date: 20210629
  Receipt Date: 20211120
  Transmission Date: 20220303
  Serious: Yes (Hospitalization)
  Sender: FDA-Public Use
  Company Number: NL-SA-SAC20210524000453

PATIENT

DRUGS (18)
  1. CEMIPLIMAB [Suspect]
     Active Substance: CEMIPLIMAB
     Indication: Lung adenocarcinoma stage IV
     Dosage: 350 MG, Q3W
     Route: 042
     Dates: start: 20201111, end: 20201111
  2. CEMIPLIMAB [Suspect]
     Active Substance: CEMIPLIMAB
     Dosage: 350 MG, Q3W
     Route: 042
     Dates: start: 20210518, end: 20210518
  3. SAR-439459 [Suspect]
     Active Substance: SAR-439459
     Indication: Lung adenocarcinoma stage IV
     Dosage: UNK UNK, Q3W
     Route: 042
     Dates: start: 20201111, end: 20201111
  4. SAR-439459 [Suspect]
     Active Substance: SAR-439459
     Dosage: UNK UNK, Q3W
     Route: 042
     Dates: start: 20210518, end: 20210518
  5. ACETAMINOPHEN [Concomitant]
     Active Substance: ACETAMINOPHEN
     Indication: Product used for unknown indication
     Dosage: TOTAL DAILY DSOE: 4000 MG, PRN
     Route: 048
  6. POLYETHYLENE GLYCOLS [Concomitant]
     Active Substance: POLYETHYLENE GLYCOLS
     Indication: Product used for unknown indication
     Dosage: TOTAL DAILY DOSE: 1 SACHET
     Route: 048
  7. CARBOMER;HYALURONIC ACID [Concomitant]
     Indication: Product used for unknown indication
     Dosage: TOTAL DAILY DOSE: 4 DROP, PRN
     Route: 047
  8. TRIAMCINOLONE ACETONIDE [Concomitant]
     Active Substance: TRIAMCINOLONE ACETONIDE
     Indication: Product used for unknown indication
     Dosage: TOTAL DAILY DOSE: 3 APPLICATION UNIT
     Route: 061
     Dates: start: 20201202
  9. DESLORATADINE [Concomitant]
     Active Substance: DESLORATADINE
     Indication: Product used for unknown indication
     Dosage: TOTAL DAILY DOSE: 20 MG
     Route: 048
     Dates: start: 20201228
  10. BETAMETHASONE [Concomitant]
     Active Substance: BETAMETHASONE
     Indication: Product used for unknown indication
     Dosage: TOTAL DAILY DOSE: 1 APPLICATION UNIT
     Route: 061
     Dates: start: 20201228
  11. ACETAMINOPHEN\TRAMADOL [Concomitant]
     Active Substance: ACETAMINOPHEN\TRAMADOL
     Indication: Product used for unknown indication
     Dosage: TOTAL DAILY DOSE: 3 TABLET
     Route: 048
     Dates: start: 20210113
  12. HYDROXYZINE [Concomitant]
     Active Substance: HYDROXYZINE HYDROCHLORIDE
     Indication: Product used for unknown indication
     Dosage: TOTAL DAILY DOSE: 75 MG
     Route: 048
     Dates: start: 20210219
  13. ALBUTEROL [Concomitant]
     Active Substance: ALBUTEROL
     Indication: Product used for unknown indication
     Dosage: TOTAL DAILY DOSE: 400 UG
     Route: 055
     Dates: start: 20210205
  14. OLODATEROL HYDROCHLORIDE\TIOTROPIUM BROMIDE MONOHYDRATE [Concomitant]
     Active Substance: OLODATEROL HYDROCHLORIDE\TIOTROPIUM BROMIDE MONOHYDRATE
     Indication: Product used for unknown indication
     Dosage: TOTAL DAILY DOSE: 2 INHALATION
     Route: 055
     Dates: start: 20210217
  15. PREDNISOLONE [Concomitant]
     Active Substance: PREDNISOLONE
     Indication: Product used for unknown indication
     Dosage: TOTAL DAILY DOSE: 10 MG
     Route: 048
     Dates: start: 20210518
  16. CAPSAICIN [Concomitant]
     Active Substance: CAPSAICIN
     Indication: Product used for unknown indication
     Dosage: 1 APPLICATION UNIT
     Route: 061
     Dates: start: 20210601, end: 20210622
  17. VASELINE                           /00473501/ [Concomitant]
     Indication: Product used for unknown indication
     Dosage: UNK
     Route: 061
     Dates: start: 20210518, end: 20210709
  18. CALCIUM CARBONATE W/VITAMIN D      /00944201/ [Concomitant]
     Indication: Product used for unknown indication
     Dosage: TOTAL DAILY DOSE: 1000 MG
     Route: 048
     Dates: start: 20210601

REACTIONS (1)
  - Radiculopathy [Not Recovered/Not Resolved]

NARRATIVE: CASE EVENT DATE: 20210618
